FAERS Safety Report 8450970-X (Version None)
Quarter: 2012Q2

REPORT INFORMATION
  Report Type: 
  Country: None (occurrence: None)
  Receive Date: 20120614
  Receipt Date: 20120614
  Transmission Date: 20120825
  Serious: Yes (Disabling)
  Sender: FDA-Public Use
  Company Number: None

PATIENT
  Age: 62 Year
  Sex: Female
  Weight: 74.8435 kg

DRUGS (1)
  1. AVELOX [Suspect]
     Indication: BACTERIAL INFECTION
     Dosage: 400 MG ONCE DAILY PO
     Route: 048
     Dates: start: 20120605, end: 20120611

REACTIONS (3)
  - ARTHRALGIA [None]
  - TENDONITIS [None]
  - TENDON RUPTURE [None]
